FAERS Safety Report 21984433 (Version 1)
Quarter: 2023Q1

REPORT INFORMATION
  Report Type: Report from Study
  Country: US (occurrence: US)
  Receive Date: 20230213
  Receipt Date: 20230213
  Transmission Date: 20230418
  Serious: No
  Sender: FDA-Public Use
  Company Number: US-ORG100014127-2022000497

PATIENT
  Age: 17 Year
  Sex: Female

DRUGS (6)
  1. LYSODREN [Suspect]
     Active Substance: MITOTANE
     Indication: Adrenocortical carcinoma
     Route: 048
     Dates: start: 20220226
  2. LYSODREN [Suspect]
     Active Substance: MITOTANE
     Indication: Adrenocortical carcinoma
     Dosage: 3.5 TABLETS (1750 MG) FOUR TIMES DAILY
     Route: 048
     Dates: start: 20220322
  3. HYDROCORT TAB 5MG [Concomitant]
     Indication: Product used for unknown indication
  4. MAGNESIUM TAB 250MG [Concomitant]
     Indication: Product used for unknown indication
  5. NIFEDIPINE POW [Concomitant]
     Indication: Product used for unknown indication
  6. SULFASALAZIN TAB 500MG [Concomitant]
     Indication: Product used for unknown indication

REACTIONS (4)
  - Fatigue [Not Recovered/Not Resolved]
  - Vomiting [Not Recovered/Not Resolved]
  - Product use complaint [Not Recovered/Not Resolved]
  - Wrong technique in product usage process [Not Recovered/Not Resolved]

NARRATIVE: CASE EVENT DATE: 20220301
